FAERS Safety Report 24917607 (Version 3)
Quarter: 2025Q2

REPORT INFORMATION
  Report Type: Spontaneous
  Country: US (occurrence: US)
  Receive Date: 20250203
  Receipt Date: 20250415
  Transmission Date: 20250716
  Serious: No
  Sender: SANOFI AVENTIS
  Company Number: US-SA-2025SA028570

PATIENT
  Age: 13 Year
  Sex: Male

DRUGS (4)
  1. ALPROLIX [Suspect]
     Active Substance: EFTRENONACOG ALFA
     Indication: Factor IX deficiency
     Dosage: 6000 [IU] INTERNATION UNIT(S) QOW
     Route: 042
     Dates: start: 202101
  2. ALPROLIX [Suspect]
     Active Substance: EFTRENONACOG ALFA
     Indication: Factor IX deficiency
     Dosage: 6000 [IU] INTERNATION UNIT(S) QOW
     Route: 042
     Dates: start: 202101
  3. ALPROLIX [Suspect]
     Active Substance: EFTRENONACOG ALFA
     Dosage: 6000 [IU] INTERNATION UNIT(S) QOW AND AS NEEDED
     Route: 042
     Dates: start: 20241010
  4. ALPROLIX [Suspect]
     Active Substance: EFTRENONACOG ALFA
     Dosage: 6000 [IU] INTERNATION UNIT(S) QOW AND AS NEEDED
     Route: 042
     Dates: start: 20241010

REACTIONS (1)
  - Haemorrhage [Unknown]

NARRATIVE: CASE EVENT DATE: 20250113
